FAERS Safety Report 24805349 (Version 5)
Quarter: 2025Q1

REPORT INFORMATION
  Report Type: Spontaneous
  Country: BR (occurrence: BR)
  Receive Date: 20250103
  Receipt Date: 20250306
  Transmission Date: 20250408
  Serious: No
  Sender: PFIZER
  Company Number: BR-PFIZER INC-PV202400170436

PATIENT
  Age: 13 Year
  Sex: Male

DRUGS (1)
  1. SOMATROGON [Suspect]
     Active Substance: SOMATROGON
     Indication: Growth disorder
     Dosage: EVERY WEDNESDAY NIGHT
     Dates: start: 202411

REACTIONS (6)
  - Injection site pain [Not Recovered/Not Resolved]
  - Injection site bruising [Not Recovered/Not Resolved]
  - Injection site erythema [Not Recovered/Not Resolved]
  - Injection site warmth [Not Recovered/Not Resolved]
  - Injection site inflammation [Not Recovered/Not Resolved]
  - Product administered at inappropriate site [Not Recovered/Not Resolved]

NARRATIVE: CASE EVENT DATE: 20240101
